FAERS Safety Report 7158620-X (Version None)
Quarter: 2010Q4

REPORT INFORMATION
  Report Type: 
  Country: None (occurrence: None)
  Receive Date: 20101214
  Receipt Date: 20100615
  Transmission Date: 20110411
  Serious: No
  Sender: FDA-Public Use
  Company Number: US-ASTRAZENECA-2010SE27883

PATIENT
  Age: 57 Year
  Sex: Male
  Weight: 111.1 kg

DRUGS (5)
  1. CRESTOR [Suspect]
     Indication: BLOOD CHOLESTEROL INCREASED
     Route: 048
     Dates: start: 20080101
  2. BLOOD PRESSSURE PILL [Concomitant]
     Indication: BLOOD PRESSURE
  3. WATER PILL [Concomitant]
  4. ASPIRIN [Concomitant]
  5. TRAMADOL [Concomitant]
     Indication: PAIN

REACTIONS (2)
  - MYALGIA [None]
  - RENAL PAIN [None]
